FAERS Safety Report 11870987 (Version 1)
Quarter: 2015Q4

REPORT INFORMATION
  Report Type: Spontaneous
  Country: US (occurrence: None)
  Receive Date: 20151224
  Receipt Date: 20151224
  Transmission Date: 20160305
  Serious: Yes (Other)
  Sender: FDA-Public Use
  Company Number: None

PATIENT
  Age: 53 Year
  Sex: Male
  Weight: 101 kg

DRUGS (9)
  1. FLONASE [Concomitant]
     Active Substance: FLUTICASONE PROPIONATE
  2. LIPITOR [Concomitant]
     Active Substance: ATORVASTATIN CALCIUM
  3. PLAVIX [Concomitant]
     Active Substance: CLOPIDOGREL BISULFATE
  4. RESTASIS [Concomitant]
     Active Substance: CYCLOSPORINE
  5. ASA [Concomitant]
     Active Substance: ASPIRIN
  6. NORVASC [Concomitant]
     Active Substance: AMLODIPINE BESYLATE
  7. DYAZIDE [Concomitant]
     Active Substance: HYDROCHLOROTHIAZIDE\TRIAMTERENE
  8. ALPROSTADIL INJ [Suspect]
     Active Substance: ALPROSTADIL
     Indication: ERECTILE DYSFUNCTION
     Dosage: 1 HR PRIOR TO SX
  9. DEXILANT [Concomitant]
     Active Substance: DEXLANSOPRAZOLE

REACTIONS (3)
  - Blood pressure increased [None]
  - Dizziness [None]
  - Headache [None]

NARRATIVE: CASE EVENT DATE: 20150904
